FAERS Safety Report 5650178-7 (Version None)
Quarter: 2008Q1

REPORT INFORMATION
  Report Type: 
  Country: None (occurrence: None)
  Receive Date: 20080303
  Receipt Date: 20080222
  Transmission Date: 20080703
  Serious: Yes (Hospitalization, Disabling)
  Sender: FDA-Public Use
  Company Number: 2008AP000499

PATIENT
  Age: 39 Year
  Sex: Female

DRUGS (4)
  1. PAROXETINE HCL [Suspect]
     Indication: DEPRESSION
     Dosage: 30 MG; QD PO, 20 MG; TAB; PO; QD, 4 ML; ORALSUS; PO; QD, 5 ML; ORAL_SUS; PO; QD, 30 MG; TAB; PO; QD
     Route: 048
     Dates: start: 20070419, end: 20071012
  2. PAROXETINE HCL [Suspect]
     Indication: DEPRESSION
     Dosage: 30 MG; QD PO, 20 MG; TAB; PO; QD, 4 ML; ORALSUS; PO; QD, 5 ML; ORAL_SUS; PO; QD, 30 MG; TAB; PO; QD
     Route: 048
     Dates: start: 20050816
  3. PAROXETINE HCL [Suspect]
     Indication: DEPRESSION
     Dosage: 30 MG; QD PO, 20 MG; TAB; PO; QD, 4 ML; ORALSUS; PO; QD, 5 ML; ORAL_SUS; PO; QD, 30 MG; TAB; PO; QD
     Route: 048
     Dates: start: 20070320
  4. PAROXETINE HCL [Suspect]
     Indication: DEPRESSION
     Dosage: 30 MG; QD PO, 20 MG; TAB; PO; QD, 4 ML; ORALSUS; PO; QD, 5 ML; ORAL_SUS; PO; QD, 30 MG; TAB; PO; QD
     Route: 048
     Dates: start: 20071012

REACTIONS (8)
  - ABNORMAL DREAMS [None]
  - CAESAREAN SECTION [None]
  - DIZZINESS [None]
  - DRUG EXPOSURE DURING PREGNANCY [None]
  - DRUG WITHDRAWAL SYNDROME [None]
  - FLUSHING [None]
  - PREGNANCY [None]
  - TALIPES [None]
